FAERS Safety Report 7016300-5 (Version None)
Quarter: 2010Q3

REPORT INFORMATION
  Report Type: 
  Country: None (occurrence: None)
  Receive Date: 20100927
  Receipt Date: 20100917
  Transmission Date: 20110219
  Serious: Yes (Other)
  Sender: FDA-Public Use
  Company Number: US-PFIZER INC-2010002598

PATIENT
  Age: 80 Year
  Sex: Male

DRUGS (2)
  1. TIKOSYN [Suspect]
  2. DRONEDARONE [Suspect]

REACTIONS (6)
  - ARRHYTHMIA [None]
  - BLOOD PRESSURE DIASTOLIC DECREASED [None]
  - BLOOD PRESSURE SYSTOLIC INCREASED [None]
  - DIZZINESS [None]
  - POLYURIA [None]
  - WEIGHT INCREASED [None]
